FAERS Safety Report 5162376-X (Version None)
Quarter: 2006Q4

REPORT INFORMATION
  Report Type: 
  Country: None (occurrence: None)
  Receive Date: 20061127
  Receipt Date: 20061127
  Transmission Date: 20070319
  Serious: Yes (Other)
  Sender: FDA-Public Use
  Company Number: None

PATIENT
  Age: 23 Year
  Sex: Female
  Weight: 97.9 kg

DRUGS (2)
  1. PROPOFOL [Suspect]
     Indication: ENDOSCOPIC RETROGRADE CHOLANGIOPANCREATOGRAPHY
     Dosage: ONE TIME IV DRIP
     Route: 041
     Dates: start: 20060820, end: 20060820
  2. ZOFRAN [Suspect]
     Indication: NAUSEA
     Dosage: Q6H IV BOLUS
     Route: 040
     Dates: start: 20060818, end: 20060820

REACTIONS (5)
  - ALANINE AMINOTRANSFERASE INCREASED [None]
  - ASPARTATE AMINOTRANSFERASE INCREASED [None]
  - BLOOD BILIRUBIN INCREASED [None]
  - INFUSION SITE ERYTHEMA [None]
  - INFUSION SITE MASS [None]
